FAERS Safety Report 5947712-6 (Version None)
Quarter: 2008Q4

REPORT INFORMATION
  Report Type: 
  Country: None (occurrence: None)
  Receive Date: 20081110
  Receipt Date: 20081110
  Transmission Date: 20090506
  Serious: No
  Sender: FDA-Public Use
  Company Number: None

PATIENT
  Sex: Female

DRUGS (2)
  1. METFORMIN HCL [Suspect]
     Indication: ABDOMINAL PAIN
     Dosage: 2 PO BID PO
     Route: 048
     Dates: start: 20030717, end: 20030731
  2. METFORMIN HCL [Suspect]
     Indication: DIARRHOEA
     Dosage: 2 PO BID PO
     Route: 048
     Dates: start: 20030717, end: 20030731

REACTIONS (4)
  - ABDOMINAL DISCOMFORT [None]
  - ABDOMINAL PAIN [None]
  - DIARRHOEA [None]
  - PRODUCT QUALITY ISSUE [None]
